FAERS Safety Report 6522989-7 (Version None)
Quarter: 2009Q4

REPORT INFORMATION
  Report Type: 
  Country: None (occurrence: None)
  Receive Date: 20091230
  Receipt Date: 20091223
  Transmission Date: 20100525
  Serious: Yes (Congenital Anomaly)
  Sender: FDA-Public Use
  Company Number: US-GILEAD-2009-0023636

PATIENT
  Sex: Female
  Weight: 2.27 kg

DRUGS (7)
  1. TRUVADA [Suspect]
     Indication: HIV INFECTION
     Route: 064
     Dates: start: 20081117
  2. EFAVIRENZ [Suspect]
     Indication: HIV INFECTION
     Route: 048
     Dates: start: 20060509, end: 20081116
  3. ATAZANAVIR [Concomitant]
     Dates: start: 20081117, end: 20090710
  4. RITONAVIR [Concomitant]
     Route: 064
     Dates: start: 20081117, end: 20090710
  5. PROPYLTHIOURACIL TAB [Concomitant]
  6. ABILIFY [Concomitant]
  7. ALBUTEROL [Concomitant]

REACTIONS (1)
  - VENTRICULAR SEPTAL DEFECT [None]
